FAERS Safety Report 8220887-4 (Version None)
Quarter: 2012Q1

REPORT INFORMATION
  Report Type: 
  Country: None (occurrence: None)
  Receive Date: 20120314
  Receipt Date: 20120302
  Transmission Date: 20120608
  Serious: Yes (Other)
  Sender: FDA-Public Use
  Company Number: US-ELI_LILLY_AND_COMPANY-US201202002313

PATIENT
  Sex: Female

DRUGS (20)
  1. FORTEO [Suspect]
     Dosage: 20 UG, QD
     Route: 058
  2. PREDNISONE [Concomitant]
  3. VITAMIN D [Concomitant]
     Dosage: UNK
  4. PROTONIX [Concomitant]
  5. MUCINEX [Concomitant]
  6. FORTEO [Suspect]
     Indication: OSTEOPOROSIS
     Dosage: 20 UG, QD
     Route: 058
  7. HEPARIN [Concomitant]
     Indication: CATHETERISATION CARDIAC
  8. CLONAZEPAM [Concomitant]
  9. PULMICORT [Concomitant]
  10. SINGULAIR [Concomitant]
  11. DUONEB [Concomitant]
  12. PATANOL [Concomitant]
  13. THEO-24 [Concomitant]
  14. ADVAIR DISKUS 100/50 [Concomitant]
  15. CLARITIN [Concomitant]
  16. M.V.I. [Suspect]
  17. JANUVIA [Concomitant]
  18. VENTOLIN HFA [Concomitant]
  19. LEVOTHYROXINE SODIUM [Concomitant]
  20. XOPENEX HFA [Concomitant]

REACTIONS (3)
  - INJECTION SITE HAEMORRHAGE [None]
  - EMPHYSEMA [None]
  - INJECTION SITE HAEMATOMA [None]
